FAERS Safety Report 21730060 (Version 2)
Quarter: 2022Q4

REPORT INFORMATION
  Report Type: Report from Study
  Country: NL (occurrence: NL)
  Receive Date: 20221214
  Receipt Date: 20221221
  Transmission Date: 20230112
  Serious: Yes (Hospitalization, Other)
  Sender: FDA-Public Use
  Company Number: NL-ABBVIE-4235797

PATIENT
  Age: 72 Year
  Sex: Male

DRUGS (7)
  1. CARBIDOPA\LEVODOPA [Suspect]
     Active Substance: CARBIDOPA\LEVODOPA
     Indication: Parkinson^s disease
     Dosage: MD: 8.0 ML, CD: 4.7 ML/H, ED: 3.0 ML?DURATION TEXT: REMAINS AT 16 HOURS?FIRST ADMINISTRATION DATE...
     Route: 050
  2. CARBIDOPA\LEVODOPA [Suspect]
     Active Substance: CARBIDOPA\LEVODOPA
     Dosage: MD: 9.0 ML?DURATION TEXT: REMAINS AT 16 HOURS?FIRST ADMINISTRATION DATE WAS 2022?LAST ADMINISTRAT...
     Route: 050
  3. CARBIDOPA\LEVODOPA [Suspect]
     Active Substance: CARBIDOPA\LEVODOPA
     Dosage: MD: 8.0 ML, CD: 5.0 ML/H, ED: 3.5 ML?DURATION TEXT: REMAINS AT 16 HOURS?FIRST ADMINISTRATION DATE...
     Route: 050
  4. CARBIDOPA\LEVODOPA [Suspect]
     Active Substance: CARBIDOPA\LEVODOPA
     Dosage: MD: 8.0 ML, CD: 4.1 ML/H, ED: 2.0 ML?DURATION TEXT: REMAINS AT 16 HOURS
     Route: 050
     Dates: start: 20221114
  5. CARBIDOPA\LEVODOPA [Suspect]
     Active Substance: CARBIDOPA\LEVODOPA
     Dosage: MD:11.0 ML, CD: 5.0 ML/H, ED: 3.5 ML?DURATION TEXT: REMAINS AT 16 HOURS?FIRST ADMINISTRATION DATE...
     Route: 050
  6. POLYETHYLENE GLYCOLS [Concomitant]
     Active Substance: POLYETHYLENE GLYCOLS
     Indication: Bowel movement irregularity
  7. BENSERAZIDE HYDROCHLORIDE\LEVODOPA [Concomitant]
     Active Substance: BENSERAZIDE HYDROCHLORIDE\LEVODOPA
     Indication: Product used for unknown indication
     Dosage: HYDRODYNAMICALLY BALANCED SYSTEM TABLETS ?DURING THE NIGHT

REACTIONS (25)
  - Post procedural complication [Not Recovered/Not Resolved]
  - Dyskinesia [Not Recovered/Not Resolved]
  - Stoma site discharge [Not Recovered/Not Resolved]
  - Device occlusion [Not Recovered/Not Resolved]
  - Device loosening [Recovered/Resolved]
  - Peritonitis [Recovering/Resolving]
  - Abnormal faeces [Not Recovered/Not Resolved]
  - Postoperative ileus [Recovering/Resolving]
  - Illness [Recovered/Resolved]
  - Surgical failure [Not Recovered/Not Resolved]
  - Nocturia [Not Recovered/Not Resolved]
  - Memory impairment [Not Recovered/Not Resolved]
  - Weight decreased [Not Recovered/Not Resolved]
  - Stoma site reaction [Not Recovered/Not Resolved]
  - Bradykinesia [Not Recovered/Not Resolved]
  - Colitis ischaemic [Recovering/Resolving]
  - Fatigue [Not Recovered/Not Resolved]
  - Hallucination [Recovered/Resolved]
  - Decreased appetite [Unknown]
  - Gait disturbance [Unknown]
  - Reduced facial expression [Unknown]
  - Stoma site erythema [Unknown]
  - On and off phenomenon [Unknown]
  - Freezing phenomenon [Unknown]
  - Muscle rigidity [Unknown]
